FAERS Safety Report 6702902-X (Version None)
Quarter: 2010Q2

REPORT INFORMATION
  Report Type: 
  Country: None (occurrence: None)
  Receive Date: 20100429
  Receipt Date: 20100429
  Transmission Date: 20101027
  Serious: No
  Sender: FDA-Public Use
  Company Number: None

PATIENT
  Age: 48 Year
  Sex: Female
  Weight: 75 kg

DRUGS (1)
  1. CLOBETASOL PROPIONATE [Suspect]
     Indication: ECZEMA
     Dosage: APPLY TO AFFECTED AREA TWICE DAILY
     Dates: start: 20100327, end: 20100410

REACTIONS (3)
  - DRUG INEFFECTIVE [None]
  - NO THERAPEUTIC RESPONSE [None]
  - PRODUCT QUALITY ISSUE [None]
